FAERS Safety Report 7570692-7 (Version None)
Quarter: 2011Q2

REPORT INFORMATION
  Report Type: 
  Country: None (occurrence: None)
  Receive Date: 20110624
  Receipt Date: 20110510
  Transmission Date: 20111010
  Serious: No
  Sender: FDA-Public Use
  Company Number: US-ALLERGAN-1106394US

PATIENT
  Age: 23 Year
  Sex: Female

DRUGS (1)
  1. LATISSE [Suspect]
     Indication: GROWTH OF EYELASHES
     Dosage: 1 DROP APPLIED TOPICALLY TO THE UPPER LID EYELASHES ONCE NIGHTLY
     Route: 061

REACTIONS (2)
  - EYELID EXFOLIATION [None]
  - DRY SKIN [None]
